FAERS Safety Report 8923122 (Version 1)
Quarter: 2012Q4

REPORT INFORMATION
  Report Type: 
  Country: CN (occurrence: CN)
  Receive Date: 20121123
  Receipt Date: 20121123
  Transmission Date: 20130627
  Serious: Yes (Other)
  Sender: FDA-Public Use
  Company Number: CN-JNJFOC-20121107497

PATIENT

DRUGS (12)
  1. DOXORUBICIN [Suspect]
     Indication: ANGIOIMMUNOBLASTIC T-CELL LYMPHOMA
     Dosage: Hyper CVAD regimen
     Route: 042
  2. DOXORUBICIN [Suspect]
     Indication: ANGIOIMMUNOBLASTIC T-CELL LYMPHOMA
     Dosage: CHOP regimen
     Route: 042
  3. CYCLOPHOSPHAMIDE [Suspect]
     Indication: ANGIOIMMUNOBLASTIC T-CELL LYMPHOMA
     Dosage: CHOP regimen
     Route: 065
  4. CYCLOPHOSPHAMIDE [Suspect]
     Indication: ANGIOIMMUNOBLASTIC T-CELL LYMPHOMA
     Dosage: Hyper CVAD regimen
     Route: 065
  5. CYCLOPHOSPHAMIDE [Suspect]
     Indication: ANGIOIMMUNOBLASTIC T-CELL LYMPHOMA
     Dosage: COP regimen
     Route: 065
  6. VINCRISTINE [Suspect]
     Indication: ANGIOIMMUNOBLASTIC T-CELL LYMPHOMA
     Dosage: COP regimen
     Route: 065
  7. VINCRISTINE [Suspect]
     Indication: ANGIOIMMUNOBLASTIC T-CELL LYMPHOMA
     Dosage: Hyper CVAD regimen
     Route: 065
  8. VINCRISTINE [Suspect]
     Indication: ANGIOIMMUNOBLASTIC T-CELL LYMPHOMA
     Dosage: CHOP regimen
     Route: 065
  9. PREDNISOLONE [Suspect]
     Indication: ANGIOIMMUNOBLASTIC T-CELL LYMPHOMA
     Dosage: CHOP regimen
     Route: 065
  10. PREDNISOLONE [Suspect]
     Indication: ANGIOIMMUNOBLASTIC T-CELL LYMPHOMA
     Dosage: Hyper CVAD regimen
     Route: 065
  11. DEXAMETHASONE [Suspect]
     Indication: ANGIOIMMUNOBLASTIC T-CELL LYMPHOMA
     Dosage: Hyper CVAD regimen
     Route: 065
  12. RADIOTHERAPY [Suspect]
     Indication: ANGIOIMMUNOBLASTIC T-CELL LYMPHOMA
     Route: 065

REACTIONS (13)
  - White blood cell count decreased [Recovering/Resolving]
  - Thrombocytopenia [Recovering/Resolving]
  - Electrocardiogram ST-T change [Recovering/Resolving]
  - Ileus paralytic [Recovering/Resolving]
  - Tumour lysis syndrome [Recovering/Resolving]
  - Oliguria [Recovering/Resolving]
  - Muscle spasms [Recovering/Resolving]
  - Hypomagnesaemia [Recovering/Resolving]
  - Blood urea increased [Recovering/Resolving]
  - Angioimmunoblastic T-cell lymphoma [Unknown]
  - Anaesthesia [Recovering/Resolving]
  - Alopecia [Recovering/Resolving]
  - Gastrointestinal disorder [Recovering/Resolving]
